FAERS Safety Report 20130283 (Version 3)
Quarter: 2023Q1

REPORT INFORMATION
  Report Type: Spontaneous
  Country: IN (occurrence: IN)
  Receive Date: 20211130
  Receipt Date: 20230120
  Transmission Date: 20230418
  Serious: Yes (Other)
  Sender: FDA-Public Use
  Company Number: IN-PFIZER INC-2021292066

PATIENT
  Age: 69 Year
  Sex: Female

DRUGS (4)
  1. PALBOCICLIB [Suspect]
     Active Substance: PALBOCICLIB
     Indication: Breast cancer metastatic
     Dosage: 125 MG, ONCE DAILY, 21 DAYS ON THEN 7 DAYS OFF
     Route: 048
     Dates: start: 20190817
  2. FEMARA [Concomitant]
     Active Substance: LETROZOLE
     Dosage: 2.5 MG, 1X/DAY
  3. CALCIUM CARBONATE [Concomitant]
     Active Substance: CALCIUM CARBONATE
     Dosage: UNK, 1X/DAY
  4. OSTEOPHOS [Concomitant]
     Dosage: 70 MG, WEEKLY

REACTIONS (3)
  - Femur fracture [Unknown]
  - Lower limb fracture [Unknown]
  - Accident [Unknown]
